FAERS Safety Report 7879062-5 (Version None)
Quarter: 2011Q4

REPORT INFORMATION
  Report Type: 
  Country: None (occurrence: None)
  Receive Date: 20111101
  Receipt Date: 20111019
  Transmission Date: 20120403
  Serious: Yes (Other)
  Sender: FDA-Public Use
  Company Number: PHHY2010CA71432

PATIENT
  Sex: Female

DRUGS (17)
  1. RANITIDINE [Concomitant]
     Dosage: UNK UKN, UNK
  2. CIPROFLOXACIN [Concomitant]
     Dosage: UNK UKN, UNK
  3. NICODERM [Concomitant]
     Dosage: UNK UKN, UNK
  4. SYMBICORT [Concomitant]
     Dosage: UNK UKN, UNK
  5. ACETYLCODONE [Concomitant]
     Dosage: UNK UKN, UNK
  6. PERINDOPRIL ERBUMINE [Concomitant]
     Dosage: UNK UKN, UNK
  7. ZOLEDRONOC ACID [Suspect]
     Indication: OSTEOPOROSIS
     Dosage: 5 MG/ 100 ML
     Route: 042
     Dates: start: 20080715
  8. COSOPT [Concomitant]
     Dosage: UNK UKN, UNK
  9. ASAPHEN [Concomitant]
     Dosage: UNK UKN, UNK
  10. ATIVAN [Concomitant]
     Dosage: UNK UKN, UNK
  11. SPIRIVA [Concomitant]
     Dosage: UNK UKN, UNK
  12. NICORETTE [Concomitant]
     Dosage: UNK UKN, UNK
  13. CITALOPRAM HYDROBROMIDE [Concomitant]
     Dosage: UNK UKN, UNK
  14. VITAMIN D [Concomitant]
     Dosage: UNK UKN, UNK
  15. PREVACID [Concomitant]
     Dosage: 1 DF, UNK
  16. FUCIDINE CAP [Concomitant]
     Dosage: UNK UKN, UNK
  17. PMS-CYCLOBENZAPRINE [Concomitant]
     Dosage: UNK UKN, UNK

REACTIONS (5)
  - BONE DENSITY DECREASED [None]
  - PAIN [None]
  - ARTHRALGIA [None]
  - BONE PAIN [None]
  - MUSCULOSKELETAL PAIN [None]
